FAERS Safety Report 4880714-X (Version None)
Quarter: 2006Q1

REPORT INFORMATION
  Report Type: 
  Country: None (occurrence: None)
  Receive Date: 20060113
  Receipt Date: 20051109
  Transmission Date: 20060701
  Serious: Yes (Hospitalization, Disabling)
  Sender: FDA-Public Use
  Company Number: US-MERCK-0511USA02081

PATIENT
  Age: 57 Year
  Sex: Male
  Weight: 93 kg

DRUGS (7)
  1. VIOXX [Suspect]
     Indication: OSTEOARTHRITIS
     Route: 048
     Dates: start: 19991223, end: 20040930
  2. VIOXX [Suspect]
     Indication: ARTHRALGIA
     Route: 048
     Dates: start: 19991223, end: 20040930
  3. PERCOCET [Concomitant]
     Indication: PAIN
     Route: 065
     Dates: start: 19900101
  4. MOBIC [Concomitant]
     Route: 065
     Dates: start: 20000101
  5. GLUCOPHAGE [Concomitant]
     Route: 065
  6. VIAGRA [Concomitant]
     Route: 065
  7. XANAX [Concomitant]
     Indication: DEPRESSION
     Route: 065
     Dates: start: 19860101

REACTIONS (25)
  - ASTHMA [None]
  - BENIGN PROSTATIC HYPERPLASIA [None]
  - BLOOD CHOLESTEROL INCREASED [None]
  - CARDIAC FAILURE [None]
  - CARDIAC FAILURE CONGESTIVE [None]
  - CHEST DISCOMFORT [None]
  - CHRONIC OBSTRUCTIVE PULMONARY DISEASE [None]
  - CORONARY ARTERY DISEASE [None]
  - CORONARY ARTERY OCCLUSION [None]
  - DEPRESSION [None]
  - DIABETES MELLITUS NON-INSULIN-DEPENDENT [None]
  - DILATATION VENTRICULAR [None]
  - DYSPNOEA [None]
  - ERECTILE DYSFUNCTION [None]
  - HYPERLIPIDAEMIA [None]
  - ISCHAEMIA [None]
  - ISCHAEMIC CARDIOMYOPATHY [None]
  - JOINT SPRAIN [None]
  - LUNG DISORDER [None]
  - MYOCARDIAL INFARCTION [None]
  - PEYRONIE'S DISEASE [None]
  - PULMONARY HYPERTENSION [None]
  - UPPER RESPIRATORY TRACT INFECTION [None]
  - VENTRICULAR HYPOKINESIA [None]
  - VENTRICULAR TACHYCARDIA [None]
